FAERS Safety Report 9570816 (Version 4)
Quarter: 2013Q4

REPORT INFORMATION
  Report Type: Spontaneous
  Country: IE (occurrence: IE)
  Receive Date: 20131001
  Receipt Date: 20131115
  Transmission Date: 20140711
  Serious: Yes (Hospitalization, Disabling, Other)
  Sender: FDA-Public Use
  Company Number: IE-ROCHE-1273093

PATIENT
  Age: 56 Year
  Sex: Female
  Weight: 53 kg

DRUGS (10)
  1. AVASTIN [Suspect]
     Indication: OVARIAN CANCER
     Route: 042
     Dates: start: 20130221
  2. AVASTIN [Suspect]
     Dosage: MAINTENANCE DOSE
     Route: 042
     Dates: start: 20130806
  3. CAELYX [Suspect]
     Indication: OVARIAN CANCER
     Route: 042
     Dates: start: 20130221, end: 20130715
  4. CARBOPLATIN [Concomitant]
     Indication: OVARIAN CANCER
     Route: 065
     Dates: start: 20110729, end: 20120312
  5. PACLITAXEL [Concomitant]
     Indication: OVARIAN CANCER
     Route: 042
     Dates: start: 20110729, end: 20120312
  6. PLAQUENIL [Concomitant]
  7. ELTROXIN [Concomitant]
     Route: 048
  8. MOTILIUM (ISRAEL) [Concomitant]
     Route: 048
  9. MYCOSTATIN [Concomitant]
     Route: 065
  10. VALOID (SOUTH AFRICA) [Concomitant]
     Route: 065

REACTIONS (5)
  - Headache [Recovering/Resolving]
  - Dyspnoea [Recovering/Resolving]
  - Left ventricular dysfunction [Recovering/Resolving]
  - Cardiac failure [Recovering/Resolving]
  - Bundle branch block left [Unknown]
